FAERS Safety Report 5713865-8 (Version None)
Quarter: 2008Q2

REPORT INFORMATION
  Report Type: 
  Country: None (occurrence: None)
  Receive Date: 20080421
  Receipt Date: 20080403
  Transmission Date: 20081010
  Serious: Yes (Hospitalization)
  Sender: FDA-Public Use
  Company Number: FRPFM-S-20080112

PATIENT
  Sex: Female

DRUGS (2)
  1. NAVELBINE [Suspect]
     Dosage: 70 MG QD IV
     Route: 042
     Dates: start: 20080207
  2. HERCEPTIN [Suspect]
     Dosage: 752 MG QD
     Dates: start: 20080207

REACTIONS (2)
  - PNEUMONIA [None]
  - RENAL FUNCTION TEST ABNORMAL [None]
